FAERS Safety Report 4745030-5 (Version None)
Quarter: 2005Q3

REPORT INFORMATION
  Report Type: 
  Country: None (occurrence: None)
  Receive Date: 20050812
  Receipt Date: 20050801
  Transmission Date: 20060218
  Serious: Yes (Hospitalization)
  Sender: FDA-Public Use
  Company Number: 2005110217

PATIENT
  Age: 64 Year
  Sex: Male
  Weight: 53 kg

DRUGS (5)
  1. FLAGYL [Suspect]
     Indication: ILL-DEFINED DISORDER
     Dosage: (DAILY), ORAL
     Route: 048
     Dates: start: 20050311, end: 20050325
  2. TRIFLUCAN (FLUCONAZOLE) [Suspect]
     Indication: ILL-DEFINED DISORDER
     Dosage: 100 MG (DAILY), ORAL
     Route: 048
     Dates: start: 20050315, end: 20050326
  3. AUGMENTIN '125' [Suspect]
     Indication: BRONCHITIS
     Dosage: 3 GRAM (TID), ORAL
     Route: 048
     Dates: start: 20050309, end: 20050326
  4. OMEPRAZOLE [Suspect]
     Indication: ILL-DEFINED DISORDER
     Dosage: 20 MG (DAILY), ORAL
     Route: 048
     Dates: start: 20050309
  5. LOVENOX [Suspect]
     Indication: ILL-DEFINED DISORDER
     Dosage: (DAILY), SUBCUTANEOUS
     Route: 058
     Dates: start: 20050309, end: 20050320

REACTIONS (2)
  - BLOOD ALKALINE PHOSPHATASE INCREASED [None]
  - GAMMA-GLUTAMYLTRANSFERASE INCREASED [None]
